FAERS Safety Report 5848589-X (Version None)
Quarter: 2008Q3

REPORT INFORMATION
  Report Type: 
  Country: None (occurrence: None)
  Receive Date: 20080818
  Receipt Date: 20080815
  Transmission Date: 20090109
  Serious: Yes (Life-Threatening, Hospitalization)
  Sender: FDA-Public Use
  Company Number: US-BRISTOL-MYERS SQUIBB COMPANY-14304240

PATIENT
  Age: 49 Year
  Sex: Male
  Weight: 83 kg

DRUGS (4)
  1. REYATAZ [Suspect]
     Indication: HIV INFECTION
     Dosage: DRUG INTERRUPTED ON 26JAN08 AND RESTARTED ON 18FEB08-ONGOING.
     Route: 048
     Dates: start: 20070917
  2. TMC125 [Suspect]
     Indication: HIV INFECTION
     Route: 048
     Dates: start: 20070917, end: 20080126
  3. ISENTRESS [Suspect]
     Indication: HIV INFECTION
     Dosage: DRUG INTERRUPTED ON 26JAN08 AND RESTARTED ON 18FEB08-ONGOING.
     Route: 048
     Dates: start: 20070917
  4. NORVIR [Suspect]
     Indication: HIV INFECTION
     Dosage: DRUG INTERRUPTED ON 26JAN08 AND RESTARTED ON 18FEB08-ONGOING.
     Route: 048
     Dates: start: 20070917

REACTIONS (1)
  - HEPATITIS ACUTE [None]
